FAERS Safety Report 23130824 (Version 1)
Quarter: 2023Q4

REPORT INFORMATION
  Report Type: Spontaneous
  Country: US (occurrence: None)
  Receive Date: 20231031
  Receipt Date: 20231031
  Transmission Date: 20240110
  Serious: Yes (Hospitalization)
  Sender: FDA-Public Use
  Company Number: 2023A242310

PATIENT
  Age: 23 Year
  Sex: Male

DRUGS (20)
  1. QUETIAPINE [Suspect]
     Active Substance: QUETIAPINE
     Indication: Mood swings
     Route: 048
  2. QUETIAPINE [Suspect]
     Active Substance: QUETIAPINE
     Indication: Agitation
     Route: 048
  3. LITHIUM [Suspect]
     Active Substance: LITHIUM
     Indication: Mood swings
  4. LITHIUM [Suspect]
     Active Substance: LITHIUM
     Indication: Agitation
  5. VALPROATE [Concomitant]
     Active Substance: VALPROIC ACID
     Indication: Mood swings
  6. VALPROATE [Concomitant]
     Active Substance: VALPROIC ACID
     Indication: Agitation
  7. METHAMPHETAMINE [Concomitant]
     Active Substance: METHAMPHETAMINE
     Indication: Mood swings
  8. METHAMPHETAMINE [Concomitant]
     Active Substance: METHAMPHETAMINE
     Indication: Agitation
  9. PROPOFOL [Concomitant]
     Active Substance: PROPOFOL
     Indication: Mood swings
  10. PROPOFOL [Concomitant]
     Active Substance: PROPOFOL
     Indication: Agitation
  11. KETAMINE [Concomitant]
     Active Substance: KETAMINE
     Indication: Mood swings
  12. KETAMINE [Concomitant]
     Active Substance: KETAMINE
     Indication: Agitation
  13. PALIPERIDONE [Concomitant]
     Active Substance: PALIPERIDONE
     Indication: Mood swings
  14. PALIPERIDONE [Concomitant]
     Active Substance: PALIPERIDONE
     Indication: Agitation
  15. GUANFACINE [Concomitant]
     Active Substance: GUANFACINE
     Indication: Mood swings
  16. GUANFACINE [Concomitant]
     Active Substance: GUANFACINE
     Indication: Agitation
  17. LORAZEPAM [Concomitant]
     Active Substance: LORAZEPAM
     Indication: Mood swings
  18. LORAZEPAM [Concomitant]
     Active Substance: LORAZEPAM
     Indication: Agitation
  19. HALOPERIDOL [Concomitant]
     Active Substance: HALOPERIDOL
     Indication: Mood swings
  20. HALOPERIDOL [Concomitant]
     Active Substance: HALOPERIDOL
     Indication: Agitation

REACTIONS (1)
  - Nephrogenic diabetes insipidus [Unknown]
